FAERS Safety Report 5316592-4 (Version None)
Quarter: 2007Q2

REPORT INFORMATION
  Report Type: 
  Country: None (occurrence: None)
  Receive Date: 20070504
  Receipt Date: 20070424
  Transmission Date: 20071010
  Serious: Yes (Other)
  Sender: FDA-Public Use
  Company Number: HQWYE846125APR07

PATIENT
  Sex: Female

DRUGS (5)
  1. ENBREL [Suspect]
     Indication: RHEUMATOID ARTHRITIS
     Route: 058
     Dates: start: 20050916
  2. AMOXIDAL [Concomitant]
  3. ACIFOL [Concomitant]
     Route: 048
  4. DICLOFENAC [Concomitant]
     Route: 048
  5. METICORTEN [Concomitant]
     Route: 048

REACTIONS (1)
  - EYE HAEMORRHAGE [None]
